FAERS Safety Report 6613137-3 (Version None)
Quarter: 2010Q1

REPORT INFORMATION
  Report Type: 
  Country: None (occurrence: None)
  Receive Date: 20100225
  Receipt Date: 20100217
  Transmission Date: 20100710
  Serious: Yes (Hospitalization)
  Sender: FDA-Public Use
  Company Number: DSA_42559_2010

PATIENT
  Sex: Female
  Weight: 58.9676 kg

DRUGS (3)
  1. XENAZINE [Suspect]
     Indication: CHOREA
     Dosage: 12.5 MG QD ORAL
     Route: 048
     Dates: start: 20090901, end: 20091201
  2. CLONAZEPAM [Concomitant]
  3. RITALIN [Concomitant]

REACTIONS (8)
  - BLOOD PRESSURE INCREASED [None]
  - CHEST DISCOMFORT [None]
  - CHEST PAIN [None]
  - DISEASE RECURRENCE [None]
  - DRUG TOLERANCE DECREASED [None]
  - DYSKINESIA [None]
  - ELECTROCARDIOGRAM ABNORMAL [None]
  - SOMNOLENCE [None]
